FAERS Safety Report 6933262-7 (Version None)
Quarter: 2010Q3

REPORT INFORMATION
  Report Type: 
  Country: None (occurrence: None)
  Receive Date: 20100820
  Receipt Date: 20100719
  Transmission Date: 20110219
  Serious: Yes (Other)
  Sender: FDA-Public Use
  Company Number: GB-JNJFOC-20100805116

PATIENT
  Age: 80 Year
  Sex: Female

DRUGS (11)
  1. ACETAMINOPHEN AND CODEINE PHOSPHATE [Suspect]
     Indication: OSTEOARTHRITIS
     Route: 048
  2. UNKNOWN MEDICATION [Suspect]
     Indication: OSTEOARTHRITIS
     Route: 065
  3. AMOXICILLIN [Concomitant]
     Indication: TRACHEITIS
  4. AMOXICILLIN [Concomitant]
  5. AMOXICILLIN [Concomitant]
     Indication: LOWER RESPIRATORY TRACT INFECTION
  6. AMOXICILLIN [Concomitant]
  7. BISACODYL [Concomitant]
  8. CALFOVIT D3 [Concomitant]
     Indication: OSTEOPOROSIS
  9. ESOMEPRAZOLE MAGNESIUM [Concomitant]
     Indication: DYSPEPSIA
  10. IBUPROFEN [Concomitant]
     Route: 065
  11. METRONIDAZOLE [Concomitant]
     Indication: DIVERTICULUM
     Route: 065

REACTIONS (1)
  - ATRIAL FIBRILLATION [None]
